FAERS Safety Report 7727746-1 (Version None)
Quarter: 2011Q3

REPORT INFORMATION
  Report Type: 
  Country: None (occurrence: None)
  Receive Date: 20110902
  Receipt Date: 20110831
  Transmission Date: 20111222
  Serious: Yes (Other)
  Sender: FDA-Public Use
  Company Number: GB-MERCK-1109GBR00008

PATIENT
  Age: 27 Year

DRUGS (1)
  1. PROPECIA [Suspect]
     Route: 048
     Dates: start: 20100101, end: 20110807

REACTIONS (4)
  - CONFUSIONAL STATE [None]
  - HEADACHE [None]
  - ANXIETY [None]
  - DEPRESSION [None]
